FAERS Safety Report 4462932-8 (Version None)
Quarter: 2004Q3

REPORT INFORMATION
  Report Type: 
  Country: None (occurrence: None)
  Receive Date: 20040930
  Receipt Date: 20040817
  Transmission Date: 20050211
  Serious: Yes (Hospitalization, Other)
  Sender: FDA-Public Use
  Company Number: US-BRISTOL-MYERS SQUIBB COMPANY-12672721

PATIENT
  Age: 57 Year
  Sex: Female

DRUGS (7)
  1. CARBOPLATIN [Suspect]
     Indication: OVARIAN CANCER
     Route: 042
     Dates: start: 20030319, end: 20030319
  2. PACLITAXEL [Suspect]
     Indication: OVARIAN CANCER
     Route: 042
     Dates: start: 20030319, end: 20030319
  3. INTERFERON GAMMA [Suspect]
     Indication: OVARIAN CANCER
     Route: 058
     Dates: start: 20030319, end: 20030319
  4. DECADRON [Concomitant]
     Dates: start: 20030319, end: 20030709
  5. ANZEMET [Concomitant]
     Dates: start: 20030319, end: 20030709
  6. PEPCID [Concomitant]
     Dates: start: 20030319, end: 20030709
  7. BENADRYL [Concomitant]
     Dates: start: 20030319, end: 20030709

REACTIONS (2)
  - BILIARY DYSKINESIA [None]
  - FLUID RETENTION [None]
